FAERS Safety Report 13879420 (Version 1)
Quarter: 2017Q3

REPORT INFORMATION
  Report Type: Spontaneous
  Country: US (occurrence: US)
  Receive Date: 20170815
  Receipt Date: 20170815
  Transmission Date: 20171127
  Serious: No
  Sender: FDA-Public Use
  Company Number: None

PATIENT
  Age: 64 Year
  Sex: Male
  Weight: 58.5 kg

DRUGS (2)
  1. IBUPROFEN. [Suspect]
     Active Substance: IBUPROFEN
     Indication: PAIN
     Dosage: ?          QUANTITY:50 ;?
     Route: 048
     Dates: start: 20170812, end: 20170812
  2. CHLOR-TRIMETON [Concomitant]
     Active Substance: CHLORPHENIRAMINE MALEATE

REACTIONS (4)
  - Abdominal discomfort [None]
  - Product odour abnormal [None]
  - Nausea [None]
  - No reaction on previous exposure to drug [None]

NARRATIVE: CASE EVENT DATE: 20170812
